FAERS Safety Report 6067407-0 (Version None)
Quarter: 2009Q1

REPORT INFORMATION
  Report Type: 
  Country: None (occurrence: None)
  Receive Date: 20090205
  Receipt Date: 20081226
  Transmission Date: 20090719
  Serious: Yes (Death)
  Sender: FDA-Public Use
  Company Number: CO-PFIZER INC-2008158511

PATIENT

DRUGS (5)
  1. LIPITOR [Suspect]
     Indication: HYPERLIPIDAEMIA
     Dosage: 10 MG, 1X/DAY
     Route: 048
     Dates: start: 20040907
  2. OLMETEC [Suspect]
     Indication: HYPERTENSION
     Dosage: 20 MG, 1X/DAY
     Route: 048
     Dates: start: 20040907
  3. METFORMIN [Concomitant]
     Dosage: 850 MG, 1X/DAY
  4. GLIBENCLAMIDE [Concomitant]
     Dosage: 5 MG, 1X/DAY
  5. METOPROLOL [Concomitant]
     Dosage: 50 MG, 3X/DAY

REACTIONS (1)
  - DEATH [None]
